FAERS Safety Report 9706606 (Version 1)
Quarter: 2013Q4

REPORT INFORMATION
  Report Type: Spontaneous
  Country: US (occurrence: US)
  Receive Date: 20131125
  Receipt Date: 20131125
  Transmission Date: 20140711
  Serious: Yes (Hospitalization, Other)
  Sender: FDA-Public Use
  Company Number: US-AMGEN-USASP2013081618

PATIENT
  Age: 43 Year
  Sex: Female

DRUGS (2)
  1. ENBREL [Suspect]
     Indication: PSORIATIC ARTHROPATHY
     Dosage: 50 MG, QWK
     Route: 065
     Dates: start: 19950101
  2. CIMZIA [Suspect]
     Indication: PRODUCT USED FOR UNKNOWN INDICATION
     Dosage: UNK
     Route: 065

REACTIONS (9)
  - Hospitalisation [Unknown]
  - Surgery [Unknown]
  - Adverse event [Not Recovered/Not Resolved]
  - Malaise [Recovered/Resolved]
  - Colonoscopy [Recovered/Resolved]
  - Hypersensitivity [Recovered/Resolved]
  - Injection site pain [Not Recovered/Not Resolved]
  - Psoriasis [Unknown]
  - Nasopharyngitis [Not Recovered/Not Resolved]
